FAERS Safety Report 6634879-X (Version None)
Quarter: 2010Q1

REPORT INFORMATION
  Report Type: 
  Country: None (occurrence: None)
  Receive Date: 20100315
  Receipt Date: 20100303
  Transmission Date: 20100710
  Serious: Yes (Hospitalization)
  Sender: FDA-Public Use
  Company Number: US-PFIZER INC-2010012494

PATIENT
  Sex: Male
  Weight: 64.853 kg

DRUGS (7)
  1. BLINDED *NO SUBJECT DRUG [Suspect]
     Indication: PROSTATE CANCER
     Dosage: 37.5 MG, 1X/DAY
     Route: 048
     Dates: start: 20091106, end: 20100126
  2. BLINDED *PLACEBO [Suspect]
     Indication: PROSTATE CANCER
     Dosage: 37.5 MG, 1X/DAY
     Route: 048
     Dates: start: 20091106, end: 20100126
  3. BLINDED SUNITINIB MALATE [Suspect]
     Indication: PROSTATE CANCER
     Dosage: 37.5 MG, 1X/DAY
     Route: 048
     Dates: start: 20091106, end: 20100126
  4. PREDNISONE [Suspect]
     Indication: PROSTATE CANCER
     Dosage: 5 MG, 2X/DAY
     Route: 048
     Dates: start: 20091106
  5. LASIX [Concomitant]
     Indication: SWELLING
     Dosage: 20 MG, 1X/DAY
     Route: 048
     Dates: start: 20100121, end: 20100123
  6. PROPOXYPHENE HCL AND ACETAMINOPHEN [Concomitant]
     Indication: PAIN
     Dosage: 110/650 MG, BID
     Route: 048
     Dates: start: 20091213
  7. OXYCODONE [Concomitant]
     Indication: PAIN
     Dosage: 20 MG, 2X/DAY
     Route: 048
     Dates: start: 20091202, end: 20091213

REACTIONS (3)
  - ANAEMIA [None]
  - DEHYDRATION [None]
  - URINE OUTPUT DECREASED [None]
